FAERS Safety Report 13400411 (Version 8)
Quarter: 2018Q2

REPORT INFORMATION
  Report Type: Report from Study
  Country: US (occurrence: US)
  Receive Date: 20170404
  Receipt Date: 20180410
  Transmission Date: 20180711
  Serious: Yes (Disabling, Other)
  Sender: FDA-Public Use
  Company Number: US-009507513-1703USA009424

PATIENT
  Age: 54 Year
  Sex: Female

DRUGS (20)
  1. KEYTRUDA [Suspect]
     Active Substance: PEMBROLIZUMAB
     Indication: MALIGNANT MELANOMA
     Dosage: UNK, Q3W
     Route: 042
     Dates: start: 20170317, end: 20170317
  2. KEYTRUDA [Suspect]
     Active Substance: PEMBROLIZUMAB
     Dosage: UNK, Q3W
     Route: 042
     Dates: start: 20170526, end: 20170526
  3. KEYTRUDA [Suspect]
     Active Substance: PEMBROLIZUMAB
     Dosage: UNK, Q3W
     Route: 042
     Dates: start: 20171027, end: 20171027
  4. KEYTRUDA [Suspect]
     Active Substance: PEMBROLIZUMAB
     Dosage: UNK, Q3W
     Route: 042
     Dates: start: 20171208, end: 20171208
  5. HYDROCODONE [Suspect]
     Active Substance: HYDROCODONE
     Indication: PAIN
     Dosage: 5-325MG, AS NEEDED
     Dates: start: 2016, end: 201704
  6. NORTRIPTYLINE [Concomitant]
     Active Substance: NORTRIPTYLINE
     Indication: SLEEP DISORDER
  7. KEYTRUDA [Suspect]
     Active Substance: PEMBROLIZUMAB
     Dosage: UNK, Q3W
     Route: 042
     Dates: start: 20170915, end: 20170915
  8. PREDNISONE. [Suspect]
     Active Substance: PREDNISONE
     Indication: COLITIS
     Dosage: UNK
     Dates: end: 2012
  9. PROZAC [Concomitant]
     Active Substance: FLUOXETINE HYDROCHLORIDE
     Indication: ANXIETY
  10. EXCEDRIN [Concomitant]
     Active Substance: ACETAMINOPHEN\ASPIRIN\CAFFEINE
     Indication: HEADACHE
  11. KEYTRUDA [Suspect]
     Active Substance: PEMBROLIZUMAB
     Dosage: UNK, Q3W
     Route: 042
     Dates: start: 20170505, end: 20170505
  12. KEYTRUDA [Suspect]
     Active Substance: PEMBROLIZUMAB
     Dosage: UNK, Q3W
     Route: 042
     Dates: start: 20170804, end: 20170804
  13. KEYTRUDA [Suspect]
     Active Substance: PEMBROLIZUMAB
     Dosage: UNK, Q3W
     Route: 042
     Dates: start: 20170414, end: 20170414
  14. KEYTRUDA [Suspect]
     Active Substance: PEMBROLIZUMAB
     Dosage: UNK, Q3W
     Route: 042
     Dates: start: 20170825, end: 20170825
  15. KEYTRUDA [Suspect]
     Active Substance: PEMBROLIZUMAB
     Dosage: UNK, Q3W
     Route: 042
     Dates: start: 201711
  16. KEYTRUDA [Suspect]
     Active Substance: PEMBROLIZUMAB
     Dosage: UNK, Q3W
     Route: 042
     Dates: start: 20171006, end: 20171006
  17. KEYTRUDA [Suspect]
     Active Substance: PEMBROLIZUMAB
     Dosage: UNK, Q3W
     Route: 042
     Dates: start: 20170616, end: 20170616
  18. KEYTRUDA [Suspect]
     Active Substance: PEMBROLIZUMAB
     Dosage: UNK, Q3W
     Route: 042
     Dates: start: 20170714, end: 20170714
  19. TOPAMAX [Concomitant]
     Active Substance: TOPIRAMATE
     Indication: MIGRAINE
     Dosage: UNK
     Dates: start: 2004, end: 20180108
  20. ALTACE [Concomitant]
     Active Substance: RAMIPRIL
     Indication: BLOOD PRESSURE ABNORMAL
     Dosage: 5 MG, UNK
     Dates: end: 20180102

REACTIONS (83)
  - Emotional disorder [Unknown]
  - Blood test abnormal [Unknown]
  - Blood alkaline phosphatase abnormal [Unknown]
  - Overweight [Unknown]
  - Hepatic enzyme increased [Not Recovered/Not Resolved]
  - Temperature regulation disorder [Unknown]
  - Fatigue [Not Recovered/Not Resolved]
  - Fatigue [Not Recovered/Not Resolved]
  - Abdominal pain upper [Recovered/Resolved]
  - Arthralgia [Recovering/Resolving]
  - Bladder disorder [Unknown]
  - Asthenia [Not Recovered/Not Resolved]
  - Skin cancer [Unknown]
  - Cholangitis sclerosing [Unknown]
  - Disability [Unknown]
  - Abdominal mass [Recovering/Resolving]
  - Energy increased [Unknown]
  - Mood altered [Unknown]
  - Crying [Unknown]
  - Cystitis [Unknown]
  - Disorganised speech [Unknown]
  - Polypectomy [Recovered/Resolved]
  - Musculoskeletal pain [Unknown]
  - Inappropriate schedule of drug administration [Unknown]
  - Hot flush [Unknown]
  - Aspartate aminotransferase increased [Recovered/Resolved]
  - Diarrhoea [Recovered/Resolved]
  - Oropharyngeal pain [Unknown]
  - Fall [Unknown]
  - Hot flush [Unknown]
  - Palpitations [Unknown]
  - Drug dose omission [Unknown]
  - Feeling abnormal [Unknown]
  - Confusional state [Unknown]
  - Sleep disorder [Recovering/Resolving]
  - Abnormal faeces [Recovered/Resolved]
  - Restlessness [Recovering/Resolving]
  - Feeling cold [Unknown]
  - Yawning [Unknown]
  - Abdominal distension [Unknown]
  - Blood pressure abnormal [Recovered/Resolved]
  - Contusion [Unknown]
  - Appendicitis [Recovering/Resolving]
  - Fall [Unknown]
  - Somnolence [Unknown]
  - Breakthrough pain [Unknown]
  - Dysplasia [Unknown]
  - Poor quality sleep [Recovering/Resolving]
  - Blood alkaline phosphatase increased [Recovered/Resolved]
  - Pain [Unknown]
  - Headache [Unknown]
  - Alanine aminotransferase increased [Recovered/Resolved]
  - Rash [Recovered/Resolved]
  - Migraine [Unknown]
  - Abdominal pain [Unknown]
  - Feeling abnormal [Not Recovered/Not Resolved]
  - Headache [Unknown]
  - Memory impairment [Not Recovered/Not Resolved]
  - Pruritus [Recovering/Resolving]
  - Blood alkaline phosphatase increased [Unknown]
  - Blood pressure decreased [Recovered/Resolved]
  - Constipation [Unknown]
  - Liver disorder [Unknown]
  - Pulmonary fibrosis [Unknown]
  - Hypersomnia [Recovering/Resolving]
  - Abdominal discomfort [Recovered/Resolved]
  - Inflammation [Recovered/Resolved]
  - Thyroid hormones decreased [Recovering/Resolving]
  - Hypogeusia [Unknown]
  - Rash [Recovered/Resolved]
  - Cough [Not Recovered/Not Resolved]
  - Basal cell carcinoma [Recovering/Resolving]
  - Tachyphrenia [Recovering/Resolving]
  - Thinking abnormal [Unknown]
  - Self esteem decreased [Recovered/Resolved]
  - Urinary tract infection [Unknown]
  - Pain in extremity [Unknown]
  - Liver disorder [Unknown]
  - Asthenia [Recovered/Resolved]
  - Fat tissue increased [Recovered/Resolved]
  - Joint hyperextension [Unknown]
  - Depressive symptom [Unknown]
  - Anxiety [Unknown]

NARRATIVE: CASE EVENT DATE: 2017
